FAERS Safety Report 6277542-X (Version None)
Quarter: 2009Q3

REPORT INFORMATION
  Report Type: 
  Country: None (occurrence: None)
  Receive Date: 20090722
  Receipt Date: 20090501
  Transmission Date: 20100115
  Serious: No
  Sender: FDA-Public Use
  Company Number: US-BAYER-200830983NA

PATIENT
  Sex: Female

DRUGS (2)
  1. YAZ [Suspect]
     Indication: HYPOMENORRHOEA
     Route: 048
  2. YAZ [Suspect]
     Route: 048
     Dates: start: 20090301

REACTIONS (5)
  - ALOPECIA [None]
  - AMENORRHOEA [None]
  - PAIN IN EXTREMITY [None]
  - PELVIC PAIN [None]
  - VAGINAL HAEMORRHAGE [None]
